FAERS Safety Report 26025450 (Version 1)
Quarter: 2025Q4

REPORT INFORMATION
  Report Type: Spontaneous
  Country: US (occurrence: US)
  Receive Date: 20251111
  Receipt Date: 20251111
  Transmission Date: 20260118
  Serious: Yes (Other)
  Sender: ROCHE
  Company Number: US-ROCHE-10000429639

PATIENT
  Sex: Female
  Weight: 56 kg

DRUGS (1)
  1. XOLAIR [Suspect]
     Active Substance: OMALIZUMAB
     Indication: Food allergy
     Route: 065

REACTIONS (5)
  - Throat tightness [Unknown]
  - Abdominal pain upper [Unknown]
  - Anaphylactic reaction [Unknown]
  - Generalised anxiety disorder [Unknown]
  - Thinking abnormal [Unknown]
